FAERS Safety Report 9508960 (Version 1)
Quarter: 2013Q3

REPORT INFORMATION
  Report Type: Spontaneous
  Country: US (occurrence: US)
  Receive Date: 20130909
  Receipt Date: 20130909
  Transmission Date: 20140515
  Serious: Yes (Other)
  Sender: FDA-Public Use
  Company Number: US-BRISTOL-MYERS SQUIBB COMPANY-19068451

PATIENT
  Age: 49 Year
  Sex: Female
  Weight: 87.98 kg

DRUGS (6)
  1. ABILIFY [Suspect]
     Indication: SCHIZOAFFECTIVE DISORDER
     Dosage: ABILIFY 5 MG
  2. LOSARTAN [Concomitant]
  3. GLIMEPIRIDE [Concomitant]
  4. VITAMIN D [Concomitant]
  5. POTASSIUM [Concomitant]
  6. BABY ASPIRIN [Concomitant]

REACTIONS (1)
  - Muscle spasms [Unknown]
